FAERS Safety Report 10833757 (Version 3)
Quarter: 2015Q3

REPORT INFORMATION
  Report Type: Spontaneous
  Country: US (occurrence: US)
  Receive Date: 20150219
  Receipt Date: 20150811
  Transmission Date: 20151125
  Serious: Yes (Other)
  Sender: FDA-Public Use
  Company Number: US-APOTEX-2015AP006685

PATIENT
  Age: 6 Year

DRUGS (1)
  1. PAXIL [Suspect]
     Active Substance: PAROXETINE HYDROCHLORIDE
     Indication: PRODUCT USED FOR UNKNOWN INDICATION
     Dosage: 20 MG, DAILY
     Route: 064
     Dates: start: 20010801

REACTIONS (4)
  - Foetal exposure during pregnancy [Unknown]
  - Craniosynostosis [Unknown]
  - Seizure [Unknown]
  - Haemangioma [Unknown]

NARRATIVE: CASE EVENT DATE: 20080527
